FAERS Safety Report 8176044-3 (Version None)
Quarter: 2012Q1

REPORT INFORMATION
  Report Type: 
  Country: None (occurrence: None)
  Receive Date: 20120301
  Receipt Date: 20120227
  Transmission Date: 20120608
  Serious: No
  Sender: FDA-Public Use
  Company Number: US-PFIZER INC-2012051798

PATIENT
  Sex: Female
  Weight: 61 kg

DRUGS (2)
  1. ESTRING [Suspect]
     Indication: VULVOVAGINAL DRYNESS
     Dosage: 2 MG, ONCE EVERY 90 DAYS
     Route: 067
     Dates: start: 20100801
  2. ALLEGRA [Concomitant]
     Indication: HYPERSENSITIVITY
     Dosage: UNK
     Dates: start: 20110101

REACTIONS (3)
  - DRUG INEFFECTIVE [None]
  - CONDITION AGGRAVATED [None]
  - VULVOVAGINAL DRYNESS [None]
